FAERS Safety Report 10434098 (Version 3)
Quarter: 2015Q1

REPORT INFORMATION
  Report Type: Spontaneous
  Country: US (occurrence: US)
  Receive Date: 20140905
  Receipt Date: 20150218
  Transmission Date: 20150720
  Serious: Yes (Hospitalization, Other)
  Sender: FDA-Public Use
  Company Number: US-SA-2014SA118766

PATIENT
  Age: 38 Year
  Sex: Male

DRUGS (10)
  1. PLAVIX [Suspect]
     Active Substance: CLOPIDOGREL BISULFATE
     Indication: MYOCARDIAL INFARCTION
     Route: 048
     Dates: start: 20050122, end: 20081002
  2. ASPIRIN. [Suspect]
     Active Substance: ASPIRIN
     Route: 048
     Dates: start: 20050120
  3. LIPITOR [Concomitant]
     Active Substance: ATORVASTATIN CALCIUM
  4. NIACIN. [Concomitant]
     Active Substance: NIACIN
  5. PLAVIX [Suspect]
     Active Substance: CLOPIDOGREL BISULFATE
     Indication: ACUTE CORONARY SYNDROME
     Route: 048
     Dates: start: 20050122, end: 20081002
  6. PLAVIX [Suspect]
     Active Substance: CLOPIDOGREL BISULFATE
     Indication: STENT PLACEMENT
     Route: 048
     Dates: start: 20050122, end: 20081002
  7. METOPROLOL [Concomitant]
     Active Substance: METOPROLOL
  8. VICODIN [Concomitant]
     Active Substance: ACETAMINOPHEN\HYDROCODONE BITARTRATE
  9. FLEXERIL [Concomitant]
     Active Substance: CYCLOBENZAPRINE HYDROCHLORIDE
  10. CELEXA [Concomitant]
     Active Substance: CITALOPRAM HYDROBROMIDE

REACTIONS (8)
  - Vomiting [Unknown]
  - Dizziness [Unknown]
  - Gastrointestinal haemorrhage [Unknown]
  - Nausea [Unknown]
  - Depression [Unknown]
  - Injury [Unknown]
  - Iron deficiency anaemia [Unknown]
  - Gastrointestinal disorder [Unknown]

NARRATIVE: CASE EVENT DATE: 20050416
